FAERS Safety Report 5506208-6 (Version None)
Quarter: 2007Q4

REPORT INFORMATION
  Report Type: 
  Country: None (occurrence: None)
  Receive Date: 20071101
  Receipt Date: 20071029
  Transmission Date: 20080405
  Serious: Yes (Death)
  Sender: FDA-Public Use
  Company Number: TCI2007A05831

PATIENT
  Age: 75 Year
  Sex: Male

DRUGS (5)
  1. LEUPLIN SR                             FOR INJECTION KIT 11.25 [Suspect]
     Indication: PROSTATE CANCER STAGE IV
     Dosage: 11.25 MG (11.25 MG, 1 IN 12 WK), SUBCUTANEOUS
     Route: 058
     Dates: start: 20060811, end: 20070130
  2. BLOPRESS                        (CANDESARTAN CILEXETIL) (TABLETS) [Concomitant]
  3. CASODEX                          (BTCALUTAMIDE) (TABLETS) [Concomitant]
  4. FLIVAS                        (NAFTOPIDIL) (TABLETS) [Concomitant]
  5. BUFFERIN [Concomitant]

REACTIONS (2)
  - INTERSTITIAL LUNG DISEASE [None]
  - URINARY INCONTINENCE [None]
